FAERS Safety Report 16327666 (Version 1)
Quarter: 2019Q2

REPORT INFORMATION
  Report Type: Spontaneous
  Country: DE (occurrence: DE)
  Receive Date: 20190517
  Receipt Date: 20190517
  Transmission Date: 20190711
  Serious: Yes (Hospitalization, Other)
  Sender: FDA-Public Use
  Company Number: PHHY2019DE110154

PATIENT
  Age: 21 Year
  Sex: Female

DRUGS (1)
  1. FLUOXETINE [Suspect]
     Active Substance: FLUOXETINE HYDROCHLORIDE
     Indication: DEPRESSION
     Dosage: 20 MG, QD
     Route: 048
     Dates: start: 20190320, end: 20190402

REACTIONS (7)
  - Drug-induced liver injury [Recovered/Resolved]
  - Abdominal discomfort [Recovered/Resolved]
  - Transaminases increased [Recovered/Resolved]
  - Nausea [Recovered/Resolved]
  - Vomiting [Recovered/Resolved]
  - Liver disorder [Recovered/Resolved]
  - Chromaturia [Recovered/Resolved]
